FAERS Safety Report 13923492 (Version 1)
Quarter: 2017Q3

REPORT INFORMATION
  Report Type: Spontaneous
  Country: US (occurrence: US)
  Receive Date: 20170830
  Receipt Date: 20170830
  Transmission Date: 20171127
  Serious: Yes (Hospitalization)
  Sender: FDA-Public Use
  Company Number: None

PATIENT
  Age: 55 Year
  Sex: Female

DRUGS (7)
  1. INSULIN GLARGINE [Concomitant]
     Active Substance: INSULIN GLARGINE
  2. DAPTOMYCIN. [Suspect]
     Active Substance: DAPTOMYCIN
     Indication: OSTEOMYELITIS
     Route: 042
     Dates: start: 20170505, end: 20170520
  3. ALBUTEROL. [Concomitant]
     Active Substance: ALBUTEROL
  4. CARVEDILOL. [Concomitant]
     Active Substance: CARVEDILOL
  5. PREGABALIN. [Concomitant]
     Active Substance: PREGABALIN
  6. METHOTREXATE. [Concomitant]
     Active Substance: METHOTREXATE
  7. FENOFIBRATE. [Concomitant]
     Active Substance: FENOFIBRATE

REACTIONS (4)
  - Respiratory failure [None]
  - Acute respiratory failure [None]
  - Acute kidney injury [None]
  - Fluid overload [None]

NARRATIVE: CASE EVENT DATE: 20170520
